FAERS Safety Report 10328546 (Version 4)
Quarter: 2014Q3

REPORT INFORMATION
  Report Type: Spontaneous
  Country: US (occurrence: None)
  Receive Date: 20120817
  Receipt Date: 20140924
  Transmission Date: 20150326
  Serious: Yes (Hospitalization, Other)
  Sender: FDA-Public Use
  Company Number: ADR-2012-00482

PATIENT
  Sex: Female

DRUGS (5)
  1. PAROXETINE [Suspect]
     Active Substance: PAROXETINE\PAROXETINE HYDROCHLORIDE
  2. LIORESAL [Suspect]
     Active Substance: BACLOFEN
     Indication: MUSCLE SPASTICITY
     Dosage: 940MCG/DAY (SEE B5)
  3. LAMOTRIGINE. [Suspect]
     Active Substance: LAMOTRIGINE
  4. PROPRANOLOL [Suspect]
     Active Substance: PROPRANOLOL\PROPRANOLOL HYDROCHLORIDE
  5. LINZESS [Suspect]
     Active Substance: LINACLOTIDE

REACTIONS (29)
  - Paraesthesia [None]
  - Infusion site mass [None]
  - Underdose [None]
  - Condition aggravated [None]
  - Akathisia [None]
  - Nausea [None]
  - Urinary retention [None]
  - Medical device complication [None]
  - Chest discomfort [None]
  - Muscle spasticity [None]
  - Posture abnormal [None]
  - Headache [None]
  - Sedation [None]
  - No therapeutic response [None]
  - Overdose [None]
  - Tremor [None]
  - Protrusion tongue [None]
  - Decreased appetite [None]
  - Gastrointestinal disorder [None]
  - Respiratory disorder [None]
  - Malaise [None]
  - Gait disturbance [None]
  - Muscle spasms [None]
  - Constipation [None]
  - Vomiting [None]
  - Functional gastrointestinal disorder [None]
  - Sleep apnoea syndrome [None]
  - Limb discomfort [None]
  - Dyspnoea [None]
